FAERS Safety Report 16712640 (Version 2)
Quarter: 2019Q4

REPORT INFORMATION
  Report Type: Report from Study
  Country: BR (occurrence: BR)
  Receive Date: 20190816
  Receipt Date: 20191216
  Transmission Date: 20200122
  Serious: Yes (Other)
  Sender: FDA-Public Use
  Company Number: PHHY2018BR075475

PATIENT
  Age: 44 Year
  Sex: Female
  Weight: 73 kg

DRUGS (5)
  1. COSENTYX [Suspect]
     Active Substance: SECUKINUMAB
     Indication: PSORIASIS
     Dosage: UNK
     Route: 065
     Dates: start: 201006
  2. COSENTYX [Suspect]
     Active Substance: SECUKINUMAB
     Dosage: 300 MG, QW
     Route: 058
     Dates: start: 20180712
  3. COSENTYX [Suspect]
     Active Substance: SECUKINUMAB
     Dosage: UNK
     Route: 065
     Dates: start: 20181201
  4. COSENTYX [Suspect]
     Active Substance: SECUKINUMAB
     Dosage: 300 MG, QMO
     Route: 058
     Dates: start: 20190112
  5. COSENTYX [Suspect]
     Active Substance: SECUKINUMAB
     Dosage: 300 MG, QMO
     Route: 058
     Dates: start: 201907

REACTIONS (25)
  - Malaise [Unknown]
  - Limb injury [Recovered/Resolved with Sequelae]
  - Depression [Unknown]
  - Pyrexia [Unknown]
  - Arthralgia [Unknown]
  - Alopecia [Unknown]
  - Dengue fever [Not Recovered/Not Resolved]
  - Skin fissures [Recovered/Resolved with Sequelae]
  - Concomitant disease aggravated [Recovered/Resolved with Sequelae]
  - Weight increased [Not Recovered/Not Resolved]
  - Pruritus [Not Recovered/Not Resolved]
  - Mobility decreased [Recovered/Resolved with Sequelae]
  - Skin haemorrhage [Recovered/Resolved with Sequelae]
  - Pain [Unknown]
  - Nervousness [Unknown]
  - Macule [Unknown]
  - Wound [Recovered/Resolved with Sequelae]
  - Pain in extremity [Unknown]
  - Mobility decreased [Unknown]
  - Balance disorder [Unknown]
  - Skin discolouration [Unknown]
  - Psoriasis [Unknown]
  - Skin irritation [Unknown]
  - Inappropriate schedule of product administration [Unknown]
  - Chikungunya virus infection [Not Recovered/Not Resolved]

NARRATIVE: CASE EVENT DATE: 201902
